FAERS Safety Report 23286343 (Version 2)
Quarter: 2023Q4

REPORT INFORMATION
  Report Type: Spontaneous
  Country: PL (occurrence: PL)
  Receive Date: 20231212
  Receipt Date: 20231225
  Transmission Date: 20240110
  Serious: Yes (Hospitalization)
  Sender: FDA-Public Use
  Company Number: None

PATIENT
  Age: 59 Year
  Sex: Female

DRUGS (6)
  1. CARIPRAZINE [Suspect]
     Active Substance: CARIPRAZINE
     Indication: Product used for unknown indication
     Dosage: EVERY 24 H
     Route: 048
     Dates: end: 2023
  2. ESCITALOPRAM OXALATE [Suspect]
     Active Substance: ESCITALOPRAM OXALATE
     Indication: Product used for unknown indication
     Dosage: EVERY 24 H
     Route: 048
     Dates: end: 2023
  3. METFORMIN HYDROCHLORIDE [Suspect]
     Active Substance: METFORMIN HYDROCHLORIDE
     Indication: Product used for unknown indication
     Dosage: EVERY 8 HOURS
     Route: 048
     Dates: end: 2023
  4. GLIPIZIDE [Suspect]
     Active Substance: GLIPIZIDE
     Indication: Product used for unknown indication
     Dosage: EVERY 24 H
     Route: 048
     Dates: end: 2023
  5. ROSUVASTATIN CALCIUM [Suspect]
     Active Substance: ROSUVASTATIN CALCIUM
     Indication: Product used for unknown indication
     Dosage: EVERY 24 H
     Route: 048
     Dates: end: 2023
  6. AMLODIPINE\RAMIPRIL [Suspect]
     Active Substance: AMLODIPINE\RAMIPRIL
     Indication: Product used for unknown indication
     Dosage: 10MG+10MG EVERY 24 HOURS
     Route: 048
     Dates: end: 2023

REACTIONS (5)
  - Fall [Recovering/Resolving]
  - Hypoglycaemia [Recovering/Resolving]
  - Limb injury [Recovering/Resolving]
  - Head injury [Recovering/Resolving]
  - Hypoglycaemic unconsciousness [Recovering/Resolving]

NARRATIVE: CASE EVENT DATE: 20230830
